FAERS Safety Report 16407705 (Version 1)
Quarter: 2019Q2

REPORT INFORMATION
  Report Type: Spontaneous
  Country: US (occurrence: US)
  Receive Date: 20190502
  Receipt Date: 20190502
  Transmission Date: 20190711
  Serious: No
  Sender: FDA-Public Use
  Company Number: None

PATIENT
  Age: 53 Year
  Sex: Male
  Weight: 65.32 kg

DRUGS (1)
  1. CAPECITABINE 500 MG TABLET [Suspect]
     Active Substance: CAPECITABINE
     Indication: COLON CANCER
     Dosage: DAILY FOR 2 WEEKS THEN 1 WEEK OFF AS DIRECTED
     Route: 058
     Dates: start: 201808

REACTIONS (1)
  - Neuropathy peripheral [None]
